FAERS Safety Report 12583892 (Version 3)
Quarter: 2016Q3

REPORT INFORMATION
  Report Type: Report from Study
  Country: US (occurrence: US)
  Receive Date: 20160722
  Receipt Date: 20160914
  Transmission Date: 20161109
  Serious: Yes (Death, Hospitalization, Other)
  Sender: FDA-Public Use
  Company Number: US-BAYER-2016-086630

PATIENT
  Age: 70 Year
  Sex: Female

DRUGS (20)
  1. STIVARGA [Suspect]
     Active Substance: REGORAFENIB
     Indication: COLON CANCER METASTATIC
     Dosage: 120 MG, QD
     Route: 048
     Dates: start: 20160427
  2. STIVARGA [Suspect]
     Active Substance: REGORAFENIB
     Indication: COLON CANCER METASTATIC
     Dosage: 80 MG, QD
     Route: 048
     Dates: start: 201608
  3. BACITRACIN. [Concomitant]
     Active Substance: BACITRACIN
     Dosage: UNK UNK, BID
     Route: 061
  4. LOMOTIL [Concomitant]
     Active Substance: ATROPINE SULFATE\DIPHENOXYLATE HYDROCHLORIDE
     Indication: DIARRHOEA
     Dosage: UNK UNK, PRN
     Route: 048
  5. IMODIUM [Concomitant]
     Active Substance: LOPERAMIDE HYDROCHLORIDE
     Indication: DIARRHOEA
     Dosage: UNK UNK, PRN
     Route: 048
  6. LORAZEPAM. [Concomitant]
     Active Substance: LORAZEPAM
  7. MEGACE [Concomitant]
     Active Substance: MEGESTROL ACETATE
     Dosage: 10 ML, BID
     Route: 048
  8. STIVARGA [Suspect]
     Active Substance: REGORAFENIB
     Indication: COLON CANCER METASTATIC
     Dosage: 120 MG, QD
     Route: 048
     Dates: start: 20160607, end: 20160612
  9. POLYETHYLENE GLYCOL [Concomitant]
     Active Substance: POLYETHYLENE GLYCOLS
  10. PROCHLORPERAZINE. [Concomitant]
     Active Substance: PROCHLORPERAZINE
  11. COMPAZINE [Concomitant]
     Active Substance: PROCHLORPERAZINE MALEATE
     Indication: NAUSEA
     Dosage: 1 DF, EVERY SIX HOURS
  12. STIVARGA [Suspect]
     Active Substance: REGORAFENIB
     Indication: COLON CANCER
     Dosage: 120 MG, QD
     Route: 048
     Dates: start: 20160529, end: 20160603
  13. ZOFRAN [Concomitant]
     Active Substance: ONDANSETRON HYDROCHLORIDE
     Indication: NAUSEA
     Dosage: 1 TAB EVERY 8 HOURS
     Route: 048
  14. COLACE [Concomitant]
     Active Substance: DOCUSATE SODIUM
     Indication: CONSTIPATION
     Dosage: 100 MG
  15. ATIVAN [Concomitant]
     Active Substance: LORAZEPAM
  16. AMOXICILLIN AND CLAVULANATE POTASSIUM [Concomitant]
     Active Substance: AMOXICILLIN\CLAVULANATE POTASSIUM
     Dosage: 1 DF, BIW
  17. DOCUSATE SODIUM. [Concomitant]
     Active Substance: DOCUSATE SODIUM
     Dosage: 100 MG
     Route: 048
  18. MIRALAX [Concomitant]
     Active Substance: POLYETHYLENE GLYCOL 3350
     Dosage: UNK UNK, PRN
     Route: 048
  19. ENOXAPARIN [Concomitant]
     Active Substance: ENOXAPARIN
     Dosage: 40 MG
     Route: 058
  20. ONDANSETRON [Concomitant]
     Active Substance: ONDANSETRON

REACTIONS (34)
  - Death [Fatal]
  - Urinary tract infection [None]
  - Musculoskeletal stiffness [Not Recovered/Not Resolved]
  - Activities of daily living impaired [Recovering/Resolving]
  - Constipation [Not Recovered/Not Resolved]
  - Wound [None]
  - Pyrexia [None]
  - Urine odour abnormal [None]
  - Muscular weakness [Not Recovered/Not Resolved]
  - Decreased appetite [Not Recovered/Not Resolved]
  - Asthenia [Recovering/Resolving]
  - Dysuria [Recovered/Resolved]
  - Abdominal discomfort [Not Recovered/Not Resolved]
  - Arthralgia [Recovering/Resolving]
  - Dysuria [None]
  - Dyspnoea exertional [Not Recovered/Not Resolved]
  - Productive cough [Recovering/Resolving]
  - Drug intolerance [None]
  - Hypophagia [Not Recovered/Not Resolved]
  - Sputum discoloured [Recovering/Resolving]
  - Gait disturbance [Recovering/Resolving]
  - Bedridden [Recovering/Resolving]
  - Failure to thrive [Recovering/Resolving]
  - Hyperbilirubinaemia [None]
  - Nasal congestion [None]
  - Pyrexia [Not Recovered/Not Resolved]
  - Joint swelling [Not Recovered/Not Resolved]
  - Unevaluable event [None]
  - Abdominal distension [Recovering/Resolving]
  - Hospitalisation [None]
  - Pyrexia [None]
  - Fatigue [Not Recovered/Not Resolved]
  - Abdominal pain lower [None]
  - Liver function test increased [Recovering/Resolving]

NARRATIVE: CASE EVENT DATE: 20160429
